FAERS Safety Report 5164714-0 (Version None)
Quarter: 2006Q4

REPORT INFORMATION
  Report Type: 
  Country: None (occurrence: None)
  Receive Date: 20061205
  Receipt Date: 20061012
  Transmission Date: 20070319
  Serious: Yes (Other)
  Sender: FDA-Public Use
  Company Number: US-SANOFI-SYNTHELABO-A03200606255

PATIENT
  Sex: Male
  Weight: 76.7 kg

DRUGS (14)
  1. ASPIRIN [Suspect]
     Indication: MYOCARDIAL INFARCTION
     Route: 048
     Dates: start: 19820301, end: 19990315
  2. PLAVIX [Suspect]
     Indication: MYOCARDIAL INFARCTION
     Dosage: UNK
     Route: 048
  3. DARVOCET [Concomitant]
     Dosage: UNK
     Route: 048
  4. NORVASC [Concomitant]
     Dosage: UNK
     Route: 048
  5. PRAVACHOL [Concomitant]
     Dosage: UNK
     Route: 048
  6. IMDUR [Concomitant]
     Dosage: UNK
     Route: 048
  7. HYDROXYUREA [Concomitant]
     Dosage: UNK
     Route: 048
  8. PRAVACHOL [Concomitant]
     Dosage: UNK
     Route: 048
  9. GLUCOTROL [Concomitant]
     Dosage: UNK
     Route: 048
  10. BENICAR [Concomitant]
  11. COUMADIN [Concomitant]
     Dosage: UNK
     Route: 048
  12. TOPROL-XL [Concomitant]
     Dosage: UNK
     Route: 048
  13. CENTRUM [Concomitant]
     Dosage: UNK
     Route: 048
  14. LIPITOR [Concomitant]
     Dosage: UNK
     Route: 048

REACTIONS (3)
  - FAECES DISCOLOURED [None]
  - GASTRIC PERFORATION [None]
  - HAEMORRHAGE [None]
